FAERS Safety Report 15341928 (Version 1)
Quarter: 2018Q4

REPORT INFORMATION
  Report Type: Spontaneous
  Country: FR (occurrence: FR)
  Receive Date: 20180901
  Receipt Date: 20180901
  Transmission Date: 20190204
  Serious: Yes (Hospitalization)
  Sender: FDA-Public Use
  Company Number: FR-AMGEN-FRASP2018120777

PATIENT
  Sex: Male
  Weight: 3.31 kg

DRUGS (3)
  1. CLAMOXYL (AMOXICILLIN) [Suspect]
     Active Substance: AMOXICILLIN
     Indication: EXPOSURE DURING PREGNANCY
     Dosage: UNK
     Route: 064
  2. UVESTEROL D [Concomitant]
     Active Substance: ERGOCALCIFEROL
     Indication: EXPOSURE DURING PREGNANCY
     Dosage: UNK
     Route: 064
  3. ENBREL [Suspect]
     Active Substance: ETANERCEPT
     Indication: EXPOSURE DURING PREGNANCY
     Dosage: 50 MG, EVERY 10 DAYS
     Route: 064
     Dates: start: 201711, end: 201711

REACTIONS (5)
  - Neonatal hypoxia [Recovering/Resolving]
  - Maternal exposure during pregnancy [Unknown]
  - Hypotonia neonatal [Not Recovered/Not Resolved]
  - Blindness [Not Recovered/Not Resolved]
  - Poor sucking reflex [Not Recovered/Not Resolved]

NARRATIVE: CASE EVENT DATE: 20180628
